FAERS Safety Report 20644864 (Version 6)
Quarter: 2023Q2

REPORT INFORMATION
  Report Type: Spontaneous
  Country: US (occurrence: US)
  Receive Date: 20220328
  Receipt Date: 20230410
  Transmission Date: 20230721
  Serious: Yes (Other)
  Sender: FDA-Public Use
  Company Number: US-PFIZER INC-202200428226

PATIENT
  Age: 78 Year
  Sex: Female
  Weight: 77.11 kg

DRUGS (3)
  1. IBRANCE [Suspect]
     Active Substance: PALBOCICLIB
     Indication: Breast cancer female
     Dosage: 125 MG
  2. IBRANCE [Suspect]
     Active Substance: PALBOCICLIB
     Dosage: 75 MG
  3. METRONIDAZOLE [Concomitant]
     Active Substance: METRONIDAZOLE
     Dosage: UNK

REACTIONS (15)
  - Pneumonia [Unknown]
  - Macular degeneration [Unknown]
  - Gait disturbance [Unknown]
  - Illness [Unknown]
  - Abdominal pain upper [Unknown]
  - Dysstasia [Unknown]
  - COVID-19 [Unknown]
  - Herpes zoster [Recovering/Resolving]
  - Pain [Unknown]
  - Abdominal discomfort [Unknown]
  - Malaise [Unknown]
  - Vitreous floaters [Not Recovered/Not Resolved]
  - Ophthalmic migraine [Unknown]
  - Dyspnoea [Unknown]
  - Neoplasm progression [Not Recovered/Not Resolved]

NARRATIVE: CASE EVENT DATE: 20220201
